FAERS Safety Report 18073263 (Version 60)
Quarter: 2025Q1

REPORT INFORMATION
  Report Type: Report from Study
  Country: US (occurrence: US)
  Receive Date: 20200727
  Receipt Date: 20250320
  Transmission Date: 20250409
  Serious: Yes (Other)
  Sender: TAKEDA
  Company Number: US-SHIRE-US202024012

PATIENT
  Age: 50 Year
  Sex: Female
  Weight: 82 kg

DRUGS (67)
  1. HUMAN IMMUNOGLOBULIN G [Suspect]
     Active Substance: HUMAN IMMUNOGLOBULIN G
     Indication: Immunodeficiency
  2. HUMAN IMMUNOGLOBULIN G [Suspect]
     Active Substance: HUMAN IMMUNOGLOBULIN G
     Indication: Selective IgG subclass deficiency
     Dosage: 30 GRAM, 3/MONTH
     Dates: start: 20171203
  3. HUMAN IMMUNOGLOBULIN G [Suspect]
     Active Substance: HUMAN IMMUNOGLOBULIN G
     Indication: Illness
  4. HUMAN IMMUNOGLOBULIN G [Suspect]
     Active Substance: HUMAN IMMUNOGLOBULIN G
     Indication: Epstein-Barr virus infection
     Dosage: 40 GRAM, Q2WEEKS
  5. HUMAN IMMUNOGLOBULIN G [Suspect]
     Active Substance: HUMAN IMMUNOGLOBULIN G
     Dosage: 30 GRAM, Q2WEEKS
  6. HUMAN IMMUNOGLOBULIN G [Suspect]
     Active Substance: HUMAN IMMUNOGLOBULIN G
  7. HUMAN IMMUNOGLOBULIN G [Suspect]
     Active Substance: HUMAN IMMUNOGLOBULIN G
  8. HEPARIN [Concomitant]
     Active Substance: HEPARIN SODIUM
  9. DIPHENHYDRAMINE HYDROCHLORIDE [Concomitant]
     Active Substance: DIPHENHYDRAMINE HYDROCHLORIDE
  10. BUTALBITAL, ACETAMINOPHEN, AND CAFFEINE [Concomitant]
     Active Substance: ACETAMINOPHEN\BUTALBITAL\CAFFEINE
  11. LYRICA [Concomitant]
     Active Substance: PREGABALIN
  12. VITAMIN D3 [Concomitant]
     Active Substance: CHOLECALCIFEROL
  13. SODIUM CHLORIDE [Concomitant]
     Active Substance: SODIUM CHLORIDE
  14. EPINEPHRINE [Concomitant]
     Active Substance: EPINEPHRINE
  15. KEVZARA [Concomitant]
     Active Substance: SARILUMAB
  16. HYDROXYCHLOROQUINE SULFATE [Concomitant]
     Active Substance: HYDROXYCHLOROQUINE SULFATE
  17. UBRELVY [Concomitant]
     Active Substance: UBROGEPANT
  18. LIDOCAINE\PRILOCAINE [Concomitant]
     Active Substance: LIDOCAINE\PRILOCAINE
  19. ZYRTEC [Concomitant]
     Active Substance: CETIRIZINE HYDROCHLORIDE
  20. ZONISAMIDE [Concomitant]
     Active Substance: ZONISAMIDE
  21. RANITIDINE [Concomitant]
     Active Substance: RANITIDINE
  22. STERILE WATER [Concomitant]
     Active Substance: WATER
  23. ACETAMINOPHEN [Concomitant]
     Active Substance: ACETAMINOPHEN
  24. TIZANIDINE HYDROCHLORIDE [Concomitant]
     Active Substance: TIZANIDINE HYDROCHLORIDE
  25. CYMBALTA [Concomitant]
     Active Substance: DULOXETINE HYDROCHLORIDE
  26. LEVOTHYROXINE SODIUM [Concomitant]
     Active Substance: LEVOTHYROXINE SODIUM
  27. SODIUM CHLORIDE [Concomitant]
     Active Substance: SODIUM CHLORIDE
  28. FENTANYL [Concomitant]
     Active Substance: FENTANYL
  29. EUCRISA [Concomitant]
     Active Substance: CRISABOROLE
  30. MINOCYCLINE HYDROCHLORIDE [Concomitant]
     Active Substance: MINOCYCLINE HYDROCHLORIDE
  31. DOXEPIN HYDROCHLORIDE [Concomitant]
     Active Substance: DOXEPIN HYDROCHLORIDE
  32. CATHFLO ACTIVASE [Concomitant]
     Active Substance: ALTEPLASE
  33. NUCYNTA [Concomitant]
     Active Substance: TAPENTADOL HYDROCHLORIDE
  34. BOTOX [Concomitant]
     Active Substance: ONABOTULINUMTOXINA
  35. PREDNISONE [Concomitant]
     Active Substance: PREDNISONE
     Dosage: 20 MILLIGRAM, QD
  36. PREDNISONE [Concomitant]
     Active Substance: PREDNISONE
     Dosage: 10 MILLIGRAM, QD
  37. SYNVISC-ONE [Concomitant]
     Active Substance: HYLAN G-F 20
  38. HUMIRA [Concomitant]
     Active Substance: ADALIMUMAB
  39. ELIQUIS [Concomitant]
     Active Substance: APIXABAN
  40. ZILRETTA [Concomitant]
     Active Substance: TRIAMCINOLONE ACETONIDE
  41. CALCIUM [Concomitant]
     Active Substance: CALCIUM
  42. METHSCOPOLAMINE BROMIDE [Concomitant]
     Active Substance: METHSCOPOLAMINE BROMIDE
  43. MAGNESIUM [Concomitant]
     Active Substance: MAGNESIUM
  44. ORENCIA [Concomitant]
     Active Substance: ABATACEPT
  45. LEFLUNOMIDE [Concomitant]
     Active Substance: LEFLUNOMIDE
  46. CALCIUM\CHOLECALCIFEROL [Concomitant]
     Active Substance: CALCIUM\CHOLECALCIFEROL
  47. HONEY [Concomitant]
     Active Substance: HONEY
  48. DOXYCYCLINE HYCLATE [Concomitant]
     Active Substance: DOXYCYCLINE HYCLATE
  49. AZELASTINE [Concomitant]
     Active Substance: AZELASTINE
  50. XYZAL [Concomitant]
     Active Substance: LEVOCETIRIZINE DIHYDROCHLORIDE
  51. CODEINE [Concomitant]
     Active Substance: CODEINE
  52. TRELEGY ELLIPTA [Concomitant]
     Active Substance: FLUTICASONE FUROATE\UMECLIDINIUM BROMIDE\VILANTEROL TRIFENATATE
  53. SUDAFED [Concomitant]
     Active Substance: PSEUDOEPHEDRINE HYDROCHLORIDE
  54. VITAMIN B [Concomitant]
     Active Substance: VITAMIN B
  55. AIMOVIG [Concomitant]
     Active Substance: ERENUMAB-AOOE
  56. ARMOUR THYROID [Concomitant]
     Active Substance: THYROID, PORCINE
  57. ACETAMINOPHEN\HYDROCODONE [Concomitant]
     Active Substance: ACETAMINOPHEN\HYDROCODONE
  58. BENZONATATE [Concomitant]
     Active Substance: BENZONATATE
  59. DIPHENHYDRAMINE [Concomitant]
     Active Substance: DIPHENHYDRAMINE
  60. CLINDAMYCIN PHOSPHATE [Concomitant]
     Active Substance: CLINDAMYCIN PHOSPHATE
  61. FIORICET [Concomitant]
     Active Substance: ACETAMINOPHEN\BUTALBITAL\CAFFEINE
  62. NEXLIZET [Concomitant]
     Active Substance: BEMPEDOIC ACID\EZETIMIBE
  63. NORETHINDRONE [Concomitant]
     Active Substance: NORETHINDRONE
  64. VASCEPA [Concomitant]
     Active Substance: ICOSAPENT ETHYL
  65. ESTRADIOL [Concomitant]
     Active Substance: ESTRADIOL
     Dosage: UNK UNK, 1/WEEK
  66. SIMPONI ARIA [Concomitant]
     Active Substance: GOLIMUMAB
  67. VITAMINS [Concomitant]
     Active Substance: VITAMINS

REACTIONS (67)
  - Neuropathy peripheral [Unknown]
  - Rheumatoid arthritis [Unknown]
  - Chest discomfort [Unknown]
  - Viral infection [Unknown]
  - Gastrointestinal infection [Unknown]
  - Respiratory tract congestion [Unknown]
  - Sinus congestion [Unknown]
  - Paranasal sinus discomfort [Unknown]
  - Nasal discharge discolouration [Unknown]
  - Paranasal sinus hypersecretion [Unknown]
  - Limb injury [Unknown]
  - Arthritis [Recovered/Resolved]
  - Tenderness [Unknown]
  - Peripheral swelling [Unknown]
  - Sinus pain [Unknown]
  - Productive cough [Unknown]
  - Sputum discoloured [Recovering/Resolving]
  - Infection [Unknown]
  - Wound complication [Unknown]
  - Impaired healing [Not Recovered/Not Resolved]
  - Animal scratch [Not Recovered/Not Resolved]
  - Infusion related reaction [Unknown]
  - Respiratory tract infection [Unknown]
  - Pleuritic pain [Recovered/Resolved]
  - Fall [Unknown]
  - Neck pain [Unknown]
  - Ophthalmic migraine [Unknown]
  - Non-pitting oedema [Unknown]
  - Upper-airway cough syndrome [Unknown]
  - Tonsillar hypertrophy [Unknown]
  - Swelling face [Unknown]
  - Post procedural infection [Unknown]
  - Oral lichen planus [Unknown]
  - Post procedural complication [Not Recovered/Not Resolved]
  - Tooth fracture [Unknown]
  - General physical health deterioration [Unknown]
  - Discomfort [Unknown]
  - Device occlusion [Unknown]
  - Product use in unapproved indication [Unknown]
  - Product dose omission issue [Unknown]
  - Upper respiratory tract infection [Unknown]
  - Device physical property issue [Unknown]
  - Sinusitis [Unknown]
  - Pain [Unknown]
  - Wheezing [Unknown]
  - Swelling [Unknown]
  - Contusion [Unknown]
  - Oropharyngeal pain [Unknown]
  - Body temperature increased [Unknown]
  - Oedema peripheral [Unknown]
  - Erythema [Unknown]
  - Cough [Unknown]
  - Arthralgia [Unknown]
  - Lymphadenopathy [Unknown]
  - Rash [Unknown]
  - Malaise [Unknown]
  - Feeling hot [Unknown]
  - Back pain [Unknown]
  - Pyrexia [Recovered/Resolved]
  - Pain in extremity [Unknown]
  - Burning sensation [Unknown]
  - Headache [Recovered/Resolved]
  - Migraine [Unknown]
  - Fatigue [Unknown]
  - Pruritus [Recovering/Resolving]
  - Sinus headache [Unknown]
  - Nasal congestion [Unknown]

NARRATIVE: CASE EVENT DATE: 20171203
